FAERS Safety Report 7296276-6 (Version None)
Quarter: 2011Q1

REPORT INFORMATION
  Report Type: 
  Country: None (occurrence: None)
  Receive Date: 20110216
  Receipt Date: 20110208
  Transmission Date: 20110831
  Serious: Yes (Other)
  Sender: FDA-Public Use
  Company Number: US-JNJFOC-20090803722

PATIENT
  Age: 16 Year
  Sex: Female

DRUGS (1)
  1. IBUPROFEN [Suspect]
     Indication: HEADACHE
     Dosage: USUALLY 2, INTERMITTENTLY, OVER THE PAST 9 MONTHS
     Route: 048

REACTIONS (2)
  - KIDNEY FIBROSIS [None]
  - TUBULOINTERSTITIAL NEPHRITIS [None]
